FAERS Safety Report 13145490 (Version 1)
Quarter: 2017Q1

REPORT INFORMATION
  Report Type: Spontaneous
  Country: SE (occurrence: SE)
  Receive Date: 20170124
  Receipt Date: 20170124
  Transmission Date: 20170428
  Serious: Yes (Hospitalization)
  Sender: FDA-Public Use
  Company Number: SE-SA-2017SA011093

PATIENT
  Age: 66 Year
  Sex: Male
  Weight: 100 kg

DRUGS (14)
  1. METOPROLOL. [Concomitant]
     Active Substance: METOPROLOL
     Route: 065
  2. CIPRALEX [Concomitant]
     Active Substance: ESCITALOPRAM OXALATE
     Route: 065
  3. MORFIN [Concomitant]
     Active Substance: MORPHINE SULFATE
     Route: 065
  4. BRUFEN [Concomitant]
     Active Substance: IBUPROFEN
     Route: 065
  5. CITODON [Concomitant]
     Active Substance: ACETAMINOPHEN\CODEINE PHOSPHATE
     Route: 065
  6. OMEPRAZOL ACTAVIS [Concomitant]
     Active Substance: OMEPRAZOLE
     Route: 065
  7. JEVTANA [Suspect]
     Active Substance: CABAZITAXEL
     Indication: PROSTATE CANCER
     Route: 065
     Dates: start: 20141110, end: 20141110
  8. DOLCONTIN [Concomitant]
     Active Substance: MORPHINE
     Route: 065
  9. ALVEDON [Concomitant]
     Active Substance: ACETAMINOPHEN
     Route: 065
  10. LEUPRORELIN [Concomitant]
     Active Substance: LEUPROLIDE ACETATE
     Route: 065
  11. DEXAMETASON [Concomitant]
     Active Substance: DEXAMETHASONE
     Route: 065
  12. KALCIPOS-D FORTE [Concomitant]
     Route: 065
  13. TROMBYL [Concomitant]
     Active Substance: ASPIRIN
     Route: 065
  14. IMOVANE [Concomitant]
     Active Substance: ZOPICLONE
     Route: 065

REACTIONS (2)
  - Febrile neutropenia [Recovered/Resolved]
  - Agranulocytosis [Recovered/Resolved]

NARRATIVE: CASE EVENT DATE: 20141123
